FAERS Safety Report 16972013 (Version 1)
Quarter: 2019Q4

REPORT INFORMATION
  Report Type: Spontaneous
  Country: CH (occurrence: CH)
  Receive Date: 20191029
  Receipt Date: 20191029
  Transmission Date: 20200122
  Serious: Yes (Life-Threatening, Other)
  Sender: FDA-Public Use
  Company Number: CH-ELI_LILLY_AND_COMPANY-CH201910011460

PATIENT
  Sex: Female

DRUGS (9)
  1. ALIMTA [Suspect]
     Active Substance: PEMETREXED DISODIUM
     Dosage: 770 MG, CYCLICAL
     Route: 042
     Dates: start: 20190724, end: 20190724
  2. CARBOPLATIN. [Suspect]
     Active Substance: CARBOPLATIN
     Dosage: 575 MG, UNK
     Route: 042
     Dates: start: 20190814, end: 20190814
  3. ALIMTA [Suspect]
     Active Substance: PEMETREXED DISODIUM
     Dosage: 760 MG, CYCLICAL
     Route: 042
     Dates: start: 20190814, end: 20190814
  4. KEYTRUDA [Suspect]
     Active Substance: PEMBROLIZUMAB
     Dosage: 200 MG, CYCLICAL
     Route: 042
     Dates: start: 20190814, end: 20190814
  5. CARBOPLATIN. [Suspect]
     Active Substance: CARBOPLATIN
     Dosage: 575 MG, CYCLICAL
     Route: 042
     Dates: start: 20190724, end: 20190724
  6. KEYTRUDA [Suspect]
     Active Substance: PEMBROLIZUMAB
     Dosage: 200 MG, CYCLICAL
     Route: 042
     Dates: start: 20190724, end: 20190724
  7. CARBOPLATIN. [Suspect]
     Active Substance: CARBOPLATIN
     Indication: NON-SMALL CELL LUNG CANCER
     Dosage: 575 MG, CYCLICAL
     Route: 042
     Dates: start: 20190703, end: 20190703
  8. ALIMTA [Suspect]
     Active Substance: PEMETREXED DISODIUM
     Indication: NON-SMALL CELL LUNG CANCER
     Dosage: 755 MG, CYCLICAL
     Route: 042
     Dates: start: 20190703, end: 20190703
  9. KEYTRUDA [Suspect]
     Active Substance: PEMBROLIZUMAB
     Indication: NON-SMALL CELL LUNG CANCER
     Dosage: 200 MG, CYCLICAL
     Route: 042
     Dates: start: 20190703, end: 20190703

REACTIONS (6)
  - Off label use [Unknown]
  - Hepatitis [Not Recovered/Not Resolved]
  - Pancreatitis [Unknown]
  - Colitis [Unknown]
  - Malignant neoplasm progression [Unknown]
  - Sialoadenitis [Recovered/Resolved]

NARRATIVE: CASE EVENT DATE: 20190724
